FAERS Safety Report 11259721 (Version 1)
Quarter: 2015Q3

REPORT INFORMATION
  Report Type: Spontaneous
  Country: US (occurrence: None)
  Receive Date: 20150709
  Receipt Date: 20150709
  Transmission Date: 20151125
  Serious: Yes (Hospitalization)
  Sender: FDA-Public Use
  Company Number: None

PATIENT
  Age: 26 Year
  Sex: Male

DRUGS (2)
  1. TESTOSTERONE. [Suspect]
     Active Substance: TESTOSTERONE
     Indication: MUSCLE BUILDING THERAPY
     Dates: start: 201312, end: 20140318
  2. OXANDROLONE. [Suspect]
     Active Substance: OXANDROLONE
     Indication: MUSCLE BUILDING THERAPY
     Dates: start: 201312, end: 20140318

REACTIONS (7)
  - Nephropathy toxic [None]
  - Hepatotoxicity [None]
  - Treatment noncompliance [None]
  - Jaundice [None]
  - Renal tubular necrosis [None]
  - Drug-induced liver injury [None]
  - Blood creatinine increased [None]

NARRATIVE: CASE EVENT DATE: 20140316
